FAERS Safety Report 21155533 (Version 1)
Quarter: 2022Q3

REPORT INFORMATION
  Report Type: Spontaneous
  Country: ES (occurrence: ES)
  Receive Date: 20220801
  Receipt Date: 20220801
  Transmission Date: 20221027
  Serious: Yes (Hospitalization)
  Sender: FDA-Public Use
  Company Number: None

PATIENT
  Age: 90 Year
  Sex: Female

DRUGS (6)
  1. FENTANYL [Suspect]
     Active Substance: FENTANYL
     Indication: Osteoarthritis
     Dosage: STRENGTH : 12 MICROGRAMS/H, UNIT DOSE: 1 DOSAGE FORMS, FREQUENCY TIME : 72 HOURS, THERAPY DURATION 3
     Route: 062
     Dates: start: 20210514, end: 20210517
  2. ACETAMINOPHEN [Concomitant]
     Active Substance: ACETAMINOPHEN
     Indication: Osteoarthritis
     Dosage: 1.0 G C/12 H, 40 TABLETS, STRENGTH : 1 GRAM
     Dates: start: 20120619
  3. FUROSEMIDE AUROVITAS [Concomitant]
     Indication: Atrioventricular block
     Dosage: 40.0 MG DE,  30 TABLETS, STRENGTH : 40 MG
     Dates: start: 20200911
  4. CYANOCOBALAMIN [Concomitant]
     Active Substance: CYANOCOBALAMIN
     Indication: Pernicious anaemia
     Dosage: UNIT DOSE : 1 MG, FREQUENCY TIME : 60 DAYS,5 AMPOULES OF 2, STRENGTH : 1000 MICROGRAM, UNIT DOSE : 1
     Dates: start: 20150613
  5. FAMOTIDINE NORMON [Concomitant]
     Indication: Burning sensation
     Dosage: 20.0 MG CE,  EFG, 28 TABLETS, STRENGTH : 20 MG
     Dates: start: 20210305
  6. LORAZEPAM [Concomitant]
     Active Substance: LORAZEPAM
     Indication: Persistent depressive disorder
     Dosage: 50 TABLETS, STRENGTH : 1 MG, UNIT DOSE : 1 MG, FREQUENCY TIME : 8 HOURS
     Dates: start: 20200825

REACTIONS (1)
  - Delirium [Recovered/Resolved]

NARRATIVE: CASE EVENT DATE: 20210517
